FAERS Safety Report 9155746 (Version 1)
Quarter: 2013Q1

REPORT INFORMATION
  Report Type: Spontaneous
  Country: US (occurrence: US)
  Receive Date: 20130311
  Receipt Date: 20130311
  Transmission Date: 20140127
  Serious: Yes (Other)
  Sender: FDA-Public Use
  Company Number: PHHY2013US021894

PATIENT
  Age: 68 Year
  Sex: Male

DRUGS (1)
  1. TRIAMCINOLONE [Suspect]
     Indication: KELOID SCAR

REACTIONS (6)
  - Melanoma recurrent [Recovered/Resolved]
  - Metastatic malignant melanoma [Recovered/Resolved]
  - Tumour invasion [Recovered/Resolved]
  - Metastases to lung [Unknown]
  - Metastases to bone [Unknown]
  - Metastases to muscle [Unknown]
